FAERS Safety Report 5053431-3 (Version None)
Quarter: 2006Q2

REPORT INFORMATION
  Report Type: 
  Country: None (occurrence: None)
  Receive Date: 20060614
  Receipt Date: 20060412
  Transmission Date: 20061013
  Serious: Yes (Other)
  Sender: FDA-Public Use
  Company Number: 444307

PATIENT
  Age: 73 Year
  Sex: Female
  Weight: 54.4 kg

DRUGS (6)
  1. BONIVA [Suspect]
     Indication: OSTEOPOROSIS
     Dosage: 1 PER MONTH ORAL
     Route: 048
     Dates: start: 20050915, end: 20060320
  2. LIPITOR [Concomitant]
  3. DICYCLOMINE [Concomitant]
  4. PROTONIX [Concomitant]
  5. ZETIA [Concomitant]
  6. FLEXERIL [Concomitant]

REACTIONS (1)
  - RASH GENERALISED [None]
